FAERS Safety Report 9862952 (Version 2)
Quarter: 2014Q1

REPORT INFORMATION
  Report Type: Report from Study
  Country: NL (occurrence: NL)
  Receive Date: 20140203
  Receipt Date: 20140206
  Transmission Date: 20141002
  Serious: Yes (Hospitalization)
  Sender: FDA-Public Use
  Company Number: PHHO2014NL001276

PATIENT
  Sex: 0

DRUGS (3)
  1. AFINITOR [Suspect]
     Indication: CLEAR CELL RENAL CELL CARCINOMA
     Dosage: 10 MG, DAILY
     Route: 048
     Dates: start: 20140115
  2. VOTRIENT [Concomitant]
     Indication: CLEAR CELL RENAL CELL CARCINOMA
     Dosage: 800 MG, DAILY
     Route: 048
     Dates: start: 20131030
  3. TINZAPARIN [Concomitant]
     Dosage: 14000 I E
     Dates: start: 20131227

REACTIONS (1)
  - Haematuria [Unknown]
